FAERS Safety Report 4313434-0 (Version None)
Quarter: 2004Q1

REPORT INFORMATION
  Report Type: 
  Country: None (occurrence: None)
  Receive Date: 20040304
  Receipt Date: 20040212
  Transmission Date: 20041129
  Serious: Yes (Other)
  Sender: FDA-Public Use
  Company Number: US_0402100806

PATIENT
  Age: 65 Year
  Sex: Female
  Weight: 78 kg

DRUGS (1)
  1. HUMALOG [Suspect]
     Dates: start: 19990101

REACTIONS (3)
  - BLOOD GLUCOSE FLUCTUATION [None]
  - EYE HAEMORRHAGE [None]
  - VISUAL ACUITY REDUCED [None]
